FAERS Safety Report 6713946-6 (Version None)
Quarter: 2010Q2

REPORT INFORMATION
  Report Type: 
  Country: None (occurrence: None)
  Receive Date: 20100503
  Receipt Date: 20100421
  Transmission Date: 20101027
  Serious: Yes (Hospitalization)
  Sender: FDA-Public Use
  Company Number: 2010AP000837

PATIENT
  Age: 28 Year
  Sex: Female

DRUGS (5)
  1. LAMOTRIGINE [Suspect]
     Indication: DEPRESSED MOOD
     Dosage: 50MG; PO, BID
     Route: 048
     Dates: start: 20100301, end: 20100323
  2. CALCIUM CARBONATE (CALIUM CARBONATE) [Concomitant]
  3. COLECALCIFEROL (COLECALCIFEROL) [Concomitant]
  4. QUETIAPINE (QUETIAPINE) [Concomitant]
  5. SERTRALINE HCL [Concomitant]

REACTIONS (4)
  - LYMPHADENOPATHY [None]
  - PANCYTOPENIA [None]
  - PYREXIA [None]
  - SPLENOMEGALY [None]
